FAERS Safety Report 6876314-2 (Version None)
Quarter: 2010Q3

REPORT INFORMATION
  Report Type: 
  Country: None (occurrence: None)
  Receive Date: 20100723
  Receipt Date: 20100708
  Transmission Date: 20110219
  Serious: Yes (Hospitalization)
  Sender: FDA-Public Use
  Company Number: AUR-APL-2010-01756

PATIENT
  Age: 50 Year
  Sex: Male

DRUGS (3)
  1. SIMVASTATIN [Suspect]
  2. ASPIRIN [Suspect]
  3. DIPYRIDAMOLE [Suspect]

REACTIONS (5)
  - CAROTID ARTERY OCCLUSION [None]
  - DYSKINESIA [None]
  - FALL [None]
  - LOSS OF CONSCIOUSNESS [None]
  - PARTIAL SEIZURES [None]
